FAERS Safety Report 4789280-0 (Version None)
Quarter: 2005Q3

REPORT INFORMATION
  Report Type: 
  Country: None (occurrence: None)
  Receive Date: 20050929
  Receipt Date: 20050817
  Transmission Date: 20060218
  Serious: No
  Sender: FDA-Public Use
  Company Number: 05P-163-0308429-00

PATIENT
  Age: 71 Year
  Sex: Female
  Weight: 57.6068 kg

DRUGS (8)
  1. HUMIRA [Suspect]
     Indication: RHEUMATOID ARTHRITIS
     Dosage: 40 MG, 1 IN 2 WK, SUBCUTANEOUS
     Route: 058
     Dates: start: 20040101, end: 20050601
  2. HUMIRA [Suspect]
     Indication: RHEUMATOID ARTHRITIS
     Dosage: 40 MG, 1 IN 2 WK, SUBCUTANEOUS
     Route: 058
     Dates: start: 20050601
  3. PANTOPRAZOLE [Concomitant]
  4. ESTRODIAL [Concomitant]
  5. METHYLPREDNISOLONE [Concomitant]
  6. CALCIUM GLUCONATE [Concomitant]
  7. MIRTAZAPINE [Concomitant]
  8. CITALOPRAM HYDROBROMIDE [Concomitant]

REACTIONS (3)
  - BLOOD PRESSURE INCREASED [None]
  - INJECTION SITE PAIN [None]
  - INJECTION SITE PRURITUS [None]
